FAERS Safety Report 8060473-2 (Version None)
Quarter: 2012Q1

REPORT INFORMATION
  Report Type: 
  Country: None (occurrence: None)
  Receive Date: 20120120
  Receipt Date: 20120117
  Transmission Date: 20120608
  Serious: Yes (Other)
  Sender: FDA-Public Use
  Company Number: GB-PFIZER INC-2011293084

PATIENT
  Age: 71 Year
  Sex: Male
  Weight: 83 kg

DRUGS (7)
  1. ASPIRIN [Concomitant]
     Indication: PAIN
     Dosage: 2 DF, 4X/DAY
     Route: 048
  2. ACETYLSALICYLIC ACID [Concomitant]
     Dosage: 75 MG, UNK
  3. MELOXICAM [Concomitant]
     Dosage: 7.5 MG, 2X/DAY
  4. SIMVASTATIN [Concomitant]
     Dosage: 20 UNK, UNK
  5. LOSARTAN [Concomitant]
     Indication: HYPERTENSION
     Dosage: 50 UNK, UNK
     Route: 048
  6. LYRICA [Suspect]
     Indication: BACK PAIN
  7. LYRICA [Suspect]
     Indication: NEUROPATHY PERIPHERAL
     Dosage: 150 MG, 2X/DAY
     Route: 048
     Dates: start: 20100826, end: 20110715

REACTIONS (3)
  - EJACULATION FAILURE [None]
  - ERECTILE DYSFUNCTION [None]
  - SKIN ODOUR ABNORMAL [None]
